FAERS Safety Report 22056859 (Version 2)
Quarter: 2023Q2

REPORT INFORMATION
  Report Type: Report from Study
  Country: US (occurrence: US)
  Receive Date: 20230303
  Receipt Date: 20230404
  Transmission Date: 20230721
  Serious: Yes (Hospitalization, Other)
  Sender: FDA-Public Use
  Company Number: US-JNJFOC-20221215356

PATIENT
  Age: 5 Decade
  Sex: Male
  Weight: 81.8 kg

DRUGS (4)
  1. SELEXIPAG [Suspect]
     Active Substance: SELEXIPAG
     Indication: Pulmonary arterial hypertension
     Route: 048
  2. SELEXIPAG [Suspect]
     Active Substance: SELEXIPAG
     Route: 048
  3. SELEXIPAG [Suspect]
     Active Substance: SELEXIPAG
     Route: 048
  4. SELEXIPAG [Suspect]
     Active Substance: SELEXIPAG
     Route: 048

REACTIONS (19)
  - Haemorrhage [Unknown]
  - Blood pressure diastolic increased [Unknown]
  - Accident [Unknown]
  - Spinal operation [Unknown]
  - Pain [Unknown]
  - Fatigue [Unknown]
  - Asthenia [Unknown]
  - Hot flush [Unknown]
  - Pain in jaw [Unknown]
  - Nausea [Unknown]
  - Skin infection [Unknown]
  - Hypoaesthesia [Unknown]
  - Abdominal distension [Not Recovered/Not Resolved]
  - Diarrhoea [Unknown]
  - Wound [Unknown]
  - Anxiety [Not Recovered/Not Resolved]
  - Chest pain [Unknown]
  - Hypoaesthesia [Unknown]
  - Blood pressure fluctuation [Unknown]

NARRATIVE: CASE EVENT DATE: 20221201
